FAERS Safety Report 4917776-7 (Version None)
Quarter: 2006Q1

REPORT INFORMATION
  Report Type: 
  Country: None (occurrence: None)
  Receive Date: 20060221
  Receipt Date: 20060208
  Transmission Date: 20060701
  Serious: Yes (Disabling)
  Sender: FDA-Public Use
  Company Number: FR-NOVOPROD-250807

PATIENT
  Age: 45 Year
  Sex: Male

DRUGS (10)
  1. RED BLOOD CELLS [Concomitant]
  2. PLATELETS [Concomitant]
  3. TISSUCOL [Concomitant]
     Dosage: 20 ML, UNK
     Dates: start: 20050426, end: 20050426
  4. NOVOSEVEN [Suspect]
     Dosage: 4.8 MG, UNK
     Route: 042
     Dates: start: 20050426, end: 20050426
  5. TRASYLOL [Concomitant]
     Dosage: 560 ML, UNK
     Route: 042
     Dates: start: 20050426, end: 20050426
  6. HEPARIN [Concomitant]
     Dosage: 280 MG, UNK
     Route: 042
     Dates: start: 20050426, end: 20050426
  7. KASKADIL [Concomitant]
     Dosage: 40 ML, UNK
     Route: 042
     Dates: start: 20050426, end: 20050426
  8. PROTAMINE SULFATE [Concomitant]
     Dosage: 330 MG, UNK
     Route: 042
     Dates: start: 20050426, end: 20050426
  9. NOVOSEVEN [Suspect]
     Dosage: 2.4 MG, UNK
     Route: 042
     Dates: start: 20050426, end: 20050426
  10. FRESH FROZEN PLASMA [Concomitant]

REACTIONS (2)
  - HEMIPLEGIA [None]
  - THROMBOTIC STROKE [None]
